FAERS Safety Report 6568451-7 (Version None)
Quarter: 2010Q1

REPORT INFORMATION
  Report Type: 
  Country: None (occurrence: None)
  Receive Date: 20100203
  Receipt Date: 20100129
  Transmission Date: 20100710
  Serious: Yes (Hospitalization, Disabling, Other)
  Sender: FDA-Public Use
  Company Number: A0842117A

PATIENT
  Age: 86 Year
  Sex: Female

DRUGS (3)
  1. ZOFRAN [Suspect]
     Indication: DRUG USE FOR UNKNOWN INDICATION
     Route: 042
     Dates: start: 20100101, end: 20100101
  2. TYLENOL-500 [Concomitant]
  3. ARICEPT [Concomitant]
     Dates: end: 20100101

REACTIONS (11)
  - AGITATION [None]
  - ASTHENIA [None]
  - BLADDER CATHETERISATION [None]
  - ELECTROCARDIOGRAM CHANGE [None]
  - EXTRAPYRAMIDAL DISORDER [None]
  - FALL [None]
  - GAIT DISTURBANCE [None]
  - HIP FRACTURE [None]
  - INCONTINENCE [None]
  - INSOMNIA [None]
  - MUSCULAR WEAKNESS [None]
